FAERS Safety Report 9134414 (Version 3)
Quarter: 2013Q2

REPORT INFORMATION
  Report Type: Spontaneous
  Country: FR (occurrence: FR)
  Receive Date: 20130304
  Receipt Date: 20130627
  Transmission Date: 20140414
  Serious: Yes (Death, Life-Threatening, Other)
  Sender: FDA-Public Use
  Company Number: FR-JNJFOC-20130213890

PATIENT
  Age: 77 Year
  Sex: Male

DRUGS (12)
  1. XARELTO [Suspect]
     Indication: ATRIAL FIBRILLATION
     Route: 048
  2. XARELTO [Suspect]
     Indication: CEREBROVASCULAR ACCIDENT PROPHYLAXIS
     Route: 048
  3. KARDEGIC [Interacting]
     Indication: PRODUCT USED FOR UNKNOWN INDICATION
     Route: 065
  4. KANOKAD [Concomitant]
     Indication: ANTICOAGULANT THERAPY
     Route: 065
  5. AUGMENTIN [Concomitant]
     Indication: PNEUMONIA ASPIRATION
     Route: 065
  6. KEPPRA [Concomitant]
     Route: 065
  7. PERFALGAN [Concomitant]
     Route: 065
  8. TENORMINE [Concomitant]
     Route: 065
  9. TRIATEC [Concomitant]
     Route: 065
  10. LOVENOX [Concomitant]
     Route: 065
  11. HYPNOVEL [Concomitant]
     Indication: PALLIATIVE CARE
     Route: 065
  12. SUFENTANIL [Concomitant]
     Indication: PALLIATIVE CARE
     Route: 065

REACTIONS (3)
  - Subdural haematoma [Fatal]
  - Subdural haematoma [Fatal]
  - Drug interaction [Unknown]
